FAERS Safety Report 16402551 (Version 1)
Quarter: 2019Q2

REPORT INFORMATION
  Report Type: Spontaneous
  Country: US (occurrence: US)
  Receive Date: 20190607
  Receipt Date: 20190607
  Transmission Date: 20190711
  Serious: No
  Sender: FDA-Public Use
  Company Number: US-MALLINCKRODT-T201802103

PATIENT
  Sex: Male

DRUGS (2)
  1. HYDROCODONE/ACETAMINOPHEN [Suspect]
     Active Substance: ACETAMINOPHEN\HYDROCODONE
     Indication: PAIN
     Dosage: 1 TABLET TWICE DAILY AS NEEDED
     Route: 048
     Dates: start: 2011
  2. HYDROCODONE/ACETAMINOPHEN [Suspect]
     Active Substance: ACETAMINOPHEN\HYDROCODONE
     Dosage: 2 TABLETS TWICE DAILY
     Route: 048

REACTIONS (2)
  - Abdominal discomfort [Unknown]
  - Treatment noncompliance [Unknown]
